FAERS Safety Report 21636382 (Version 4)
Quarter: 2023Q1

REPORT INFORMATION
  Report Type: Spontaneous
  Country: GB (occurrence: GB)
  Receive Date: 20221124
  Receipt Date: 20230201
  Transmission Date: 20230418
  Serious: Yes (Other)
  Sender: FDA-Public Use
  Company Number: GB-BRISTOL-MYERS SQUIBB COMPANY-2022-139309

PATIENT
  Age: 43 Year
  Sex: Female

DRUGS (4)
  1. THALIDOMIDE [Suspect]
     Active Substance: THALIDOMIDE
     Indication: Product used for unknown indication
     Dosage: DRUG TAKEN BY MALE PARTNER
     Route: 050
     Dates: start: 20220701, end: 20221114
  2. FOLIC ACID [Concomitant]
     Active Substance: FOLIC ACID
     Indication: Anaemia
     Dates: start: 2020
  3. VITAMIN D NOS [Concomitant]
     Active Substance: VITAMIN D NOS
     Indication: Anaemia
     Dates: start: 2020
  4. IRON [Concomitant]
     Active Substance: IRON
     Indication: Anaemia
     Dates: start: 2020

REACTIONS (3)
  - Exposure via body fluid [Unknown]
  - Pregnancy with contraceptive device [Unknown]
  - Abortion spontaneous [Unknown]

NARRATIVE: CASE EVENT DATE: 20221120
